FAERS Safety Report 9563015 (Version 1)
Quarter: 2013Q3

REPORT INFORMATION
  Report Type: Spontaneous
  Country: US (occurrence: US)
  Receive Date: 20130927
  Receipt Date: 20130927
  Transmission Date: 20140515
  Serious: Yes (Hospitalization)
  Sender: FDA-Public Use
  Company Number: US-MYLANLABS-2013S1021082

PATIENT
  Age: 12 Year
  Sex: Male

DRUGS (5)
  1. GUANFACINE [Suspect]
     Indication: ATTENTION DEFICIT/HYPERACTIVITY DISORDER
     Dosage: 4MG NIGHTLY
     Route: 048
  2. GUANFACINE [Suspect]
     Indication: ACCIDENTAL OVERDOSE
     Dosage: 4MG NIGHTLY
     Route: 048
  3. GUANFACINE [Suspect]
     Indication: ATTENTION DEFICIT/HYPERACTIVITY DISORDER
     Dosage: 8MG
     Route: 048
  4. GUANFACINE [Suspect]
     Indication: ACCIDENTAL OVERDOSE
     Dosage: 8MG
     Route: 048
  5. DEXMETHYLPHENIDATE [Concomitant]
     Dosage: 25MG DAILY
     Route: 065

REACTIONS (5)
  - Accidental overdose [Recovered/Resolved]
  - Lethargy [Recovered/Resolved]
  - Bradycardia [Recovered/Resolved]
  - Hypertension [Recovered/Resolved]
  - Hypotension [Recovered/Resolved]
